FAERS Safety Report 5713232-7 (Version None)
Quarter: 2008Q2

REPORT INFORMATION
  Report Type: 
  Country: None (occurrence: None)
  Receive Date: 20080422
  Receipt Date: 19990804
  Transmission Date: 20081010
  Serious: Yes (Death, Hospitalization)
  Sender: FDA-Public Use
  Company Number: DE-ROCHE-212568

PATIENT
  Sex: Male

DRUGS (7)
  1. CAPECITABINE [Suspect]
     Indication: COLORECTAL CANCER
     Dosage: INTERMITTENT THERAPY: 2 WEEKS TREATMENT FOLLOWED BY ONE WEEK REST
     Route: 048
     Dates: start: 19990624, end: 19990707
  2. IRINOTECAN HCL [Suspect]
     Indication: COLORECTAL CANCER
     Route: 042
     Dates: start: 19990624, end: 19990630
  3. RANITIDINE [Concomitant]
  4. ALLOPURINOL [Concomitant]
  5. IMODIUM [Concomitant]
  6. BISOPROLOL FUMARATE [Concomitant]
  7. PARENTERAL FEEDING [Concomitant]
     Dates: start: 19990709, end: 19990712

REACTIONS (3)
  - DEATH [None]
  - DIARRHOEA [None]
  - SUDDEN DEATH [None]
